FAERS Safety Report 8762718 (Version 1)
Quarter: 2012Q4

REPORT INFORMATION
  Report Type: 
  Country: CA (occurrence: CA)
  Receive Date: 20120831
  Receipt Date: 20120831
  Transmission Date: 20130627
  Serious: Yes (Other)
  Sender: FDA-Public Use
  Company Number: CA-ROCHE-1111330

PATIENT
  Sex: Male

DRUGS (5)
  1. XOLAIR [Suspect]
     Indication: ASTHMA
     Route: 058
     Dates: start: 20120815
  2. SPIRIVA [Concomitant]
  3. VENTOLIN [Concomitant]
  4. ALVESCO [Concomitant]
  5. SYMBICORT [Concomitant]

REACTIONS (1)
  - Dyspnoea [Unknown]
